FAERS Safety Report 12928505 (Version 1)
Quarter: 2016Q4

REPORT INFORMATION
  Report Type: Spontaneous
  Country: GB (occurrence: GB)
  Receive Date: 20161110
  Receipt Date: 20161110
  Transmission Date: 20170207
  Serious: Yes (Other)
  Sender: FDA-Public Use
  Company Number: GB-JNJFOC-20161102331

PATIENT
  Age: 44 Year
  Sex: Female
  Weight: 75 kg

DRUGS (7)
  1. PARACETAMOL [Suspect]
     Active Substance: ACETAMINOPHEN
     Indication: PRODUCT USED FOR UNKNOWN INDICATION
     Route: 065
     Dates: start: 20130311
  2. PARACETAMOL [Suspect]
     Active Substance: ACETAMINOPHEN
     Route: 065
  3. DEXAMETHASONE SODIUM PHOSPHATE. [Concomitant]
     Active Substance: DEXAMETHASONE SODIUM PHOSPHATE
     Indication: PRODUCT USED FOR UNKNOWN INDICATION
     Dosage: DOSE 1 (UNITS UNSPECIFIED), AS DIRECTED
     Route: 065
     Dates: start: 20161012
  4. APRACLONIDINE HYDROCHLORIDE [Concomitant]
     Active Substance: APRACLONIDINE HYDROCHLORIDE
     Indication: PRODUCT USED FOR UNKNOWN INDICATION
     Dosage: DOSE 1 (UNITS UNSPECIFIED), CUMULATIVE DOSE TO FIRST REACTION 36 (UNITS UNSPECIFIED)
     Route: 065
     Dates: start: 20161012
  5. DORZOLAMIDE HYDROCHLORIDE. [Concomitant]
     Active Substance: DORZOLAMIDE HYDROCHLORIDE
     Indication: PRODUCT USED FOR UNKNOWN INDICATION
     Dosage: DOSE 1(UNIT UNSPECIFIED) CUMULATIVE DOSE TO FIRST REACTION 2196 (UNIT UNSPECIFIED) IN AFFECTED EYE
     Route: 065
     Dates: start: 20141023
  6. IOPIDINE [Concomitant]
     Active Substance: APRACLONIDINE HYDROCHLORIDE
     Indication: PRODUCT USED FOR UNKNOWN INDICATION
     Dosage: DOSE 1 (UNIT UNSPECIFIED) CUMULATIVE DOSE TO FIRST REACTION 2196 (UNIT UNSPECIFIED)
     Route: 065
     Dates: start: 20141023, end: 20161005
  7. LEVOTHYROXINE. [Concomitant]
     Active Substance: LEVOTHYROXINE
     Indication: PRODUCT USED FOR UNKNOWN INDICATION
     Dosage: DOSE 1 (UNITS UNPSECIFIED) CUMULATIVE DOSE TO FIRST REACTION 732 (UNITS UNPSECIFIED)
     Route: 065
     Dates: start: 20141023

REACTIONS (2)
  - Hypersensitivity [Unknown]
  - Malaise [Recovering/Resolving]

NARRATIVE: CASE EVENT DATE: 20161024
